FAERS Safety Report 24181826 (Version 1)
Quarter: 2024Q3

REPORT INFORMATION
  Report Type: Report from Study
  Country: TR (occurrence: TR)
  Receive Date: 20240807
  Receipt Date: 20240807
  Transmission Date: 20241017
  Serious: Yes (Other)
  Sender: NEXUS PHARMACEUTICALS
  Company Number: TR-Nexus Pharma-000297

PATIENT

DRUGS (1)
  1. LEVETIRACETAM [Suspect]
     Active Substance: LEVETIRACETAM
     Indication: Epilepsy
     Route: 064

REACTIONS (2)
  - Neurodevelopmental delay [Unknown]
  - Foetal exposure during pregnancy [Unknown]
